FAERS Safety Report 5064822-9 (Version None)
Quarter: 2006Q3

REPORT INFORMATION
  Report Type: 
  Country: None (occurrence: None)
  Receive Date: 20060725
  Receipt Date: 20060710
  Transmission Date: 20061208
  Serious: Yes (Death)
  Sender: FDA-Public Use
  Company Number: 2006S1004892

PATIENT
  Age: 60 Year
  Sex: Female
  Weight: 107.9561 kg

DRUGS (7)
  1. FENTANYL TRANSDERMAL SYSTEM [Suspect]
     Indication: BREAST CANCER
     Dosage: 50 UG/HRE; Q3D; TRANS
     Dates: start: 20060512, end: 20060101
  2. POTASSIUM CHLORIDE [Concomitant]
  3. FUROSEMIDE [Concomitant]
  4. NAPROXEN SODIUM [Concomitant]
  5. MAGNESIUM HYDROXIDE TAB [Concomitant]
  6. PERCOCET /00446701/ [Concomitant]
  7. SEPTRA DS [Concomitant]

REACTIONS (3)
  - DRUG EFFECT DECREASED [None]
  - PAIN [None]
  - PHARMACEUTICAL PRODUCT COMPLAINT [None]
